FAERS Safety Report 5389959-6 (Version None)
Quarter: 2007Q3

REPORT INFORMATION
  Report Type: 
  Country: None (occurrence: None)
  Receive Date: 20070718
  Receipt Date: 20070109
  Transmission Date: 20080115
  Serious: No
  Sender: FDA-Public Use
  Company Number: A0634945A

PATIENT
  Age: 40 Year
  Sex: Female

DRUGS (3)
  1. HYCAMTIN [Suspect]
     Dosage: 1.6MGM2 AS REQUIRED
     Route: 042
     Dates: start: 20060101
  2. CISPLATIN [Suspect]
     Route: 065
  3. NEULASTA [Suspect]
     Route: 065

REACTIONS (2)
  - HAEMATOMA [None]
  - LOCAL SWELLING [None]
